FAERS Safety Report 8757467 (Version 1)
Quarter: 2012Q4

REPORT INFORMATION
  Report Type: 
  Country: US (occurrence: US)
  Receive Date: 20120828
  Receipt Date: 20120828
  Transmission Date: 20130627
  Serious: No
  Sender: FDA-Public Use
  Company Number: US-BAUSCH-2012BL001195

PATIENT
  Age: 58 Year
  Sex: Male

DRUGS (4)
  1. CROMOLYN SODIUM NASAL SOLUTION USP [Suspect]
     Indication: RHINORRHOEA
     Dosage: daily dose: 2 SPRAY
     Route: 045
     Dates: end: 20120110
  2. CROMOLYN SODIUM NASAL SOLUTION USP [Suspect]
     Indication: NASAL DISCOMFORT
  3. CIPROFLOXACIN HYDROCHLORIDE [Suspect]
     Indication: PRODUCT USED FOR UNKNOWN INDICATION
     Route: 048
     Dates: end: 201201
  4. PREDNISONE [Suspect]
     Indication: PRODUCT USED FOR UNKNOWN INDICATION
     Route: 048
     Dates: end: 201201

REACTIONS (2)
  - Dysgeusia [Not Recovered/Not Resolved]
  - Parosmia [Not Recovered/Not Resolved]
